FAERS Safety Report 5029891-0 (Version None)
Quarter: 2006Q2

REPORT INFORMATION
  Report Type: 
  Country: None (occurrence: None)
  Receive Date: 20060620
  Receipt Date: 20060614
  Transmission Date: 20061013
  Serious: Yes (Death)
  Sender: FDA-Public Use
  Company Number: 2006GB01018

PATIENT
  Sex: Male

DRUGS (6)
  1. CANDESARTAN [Suspect]
     Indication: CARDIAC FAILURE
     Route: 048
     Dates: start: 20060425
  2. AMIODARONE HCL [Concomitant]
     Route: 065
  3. ASPIRIN [Concomitant]
     Route: 065
  4. FUROSEMIDE [Concomitant]
     Indication: OEDEMA
     Route: 048
     Dates: start: 20060424
  5. FUROSEMIDE [Concomitant]
     Indication: DYSPNOEA
     Route: 048
     Dates: start: 20060424
  6. LEVOTHYROXINE SODIUM [Concomitant]
     Route: 065

REACTIONS (2)
  - HYPOTENSION [None]
  - RENAL FAILURE ACUTE [None]
